FAERS Safety Report 6497369-3 (Version None)
Quarter: 2009Q4

REPORT INFORMATION
  Report Type: 
  Country: None (occurrence: None)
  Receive Date: 20091215
  Receipt Date: 20091019
  Transmission Date: 20100525
  Serious: No
  Sender: FDA-Public Use
  Company Number: A0812391A

PATIENT
  Age: 63 Year
  Sex: Male

DRUGS (6)
  1. AVODART [Suspect]
     Dosage: .5MG PER DAY
     Route: 048
     Dates: start: 20060101
  2. PROCARDIA XL [Concomitant]
  3. METFORMIN HCL [Concomitant]
  4. LOVASTATIN [Concomitant]
  5. AMARYL [Concomitant]
  6. ASPIRIN [Concomitant]

REACTIONS (2)
  - FEELING HOT [None]
  - HEADACHE [None]
